FAERS Safety Report 18790996 (Version 2)
Quarter: 2022Q2

REPORT INFORMATION
  Report Type: Spontaneous
  Country: US (occurrence: US)
  Receive Date: 20210126
  Receipt Date: 20220503
  Transmission Date: 20220721
  Serious: No
  Sender: FDA-Public Use
  Company Number: US-BIOMARINAP-US-2020-134062

PATIENT
  Sex: Female
  Weight: 41.995 kg

DRUGS (4)
  1. KUVAN [Suspect]
     Active Substance: SAPROPTERIN DIHYDROCHLORIDE
     Indication: Phenylketonuria
     Dosage: 800 MILLIGRAM, QD
     Route: 048
     Dates: start: 20160711
  2. PHENEXPECT [Concomitant]
     Indication: Product used for unknown indication
     Dosage: 30G-410 POWDER
  3. CHILDREN^S ALL DAY ALLERGY [Concomitant]
     Indication: Product used for unknown indication
  4. CHILDREN^S ALL DAY ALLERGY [Concomitant]
     Indication: Product used for unknown indication

REACTIONS (4)
  - Sinusitis [Not Recovered/Not Resolved]
  - Amino acid level abnormal [Not Recovered/Not Resolved]
  - Attention deficit hyperactivity disorder [Unknown]
  - Gastroenteritis viral [Unknown]

NARRATIVE: CASE EVENT DATE: 20220301
